FAERS Safety Report 16881997 (Version 1)
Quarter: 2019Q4

REPORT INFORMATION
  Report Type: Spontaneous
  Country: BE (occurrence: BE)
  Receive Date: 20191003
  Receipt Date: 20191003
  Transmission Date: 20200122
  Serious: Yes (Other)
  Sender: FDA-Public Use
  Company Number: BE-AMGEN-BELSP2019159459

PATIENT
  Sex: Male

DRUGS (2)
  1. DECAPEPTYL [GONADORELIN] [Concomitant]
     Active Substance: GONADORELIN
     Dosage: UNK
  2. XGEVA [Suspect]
     Active Substance: DENOSUMAB
     Indication: METASTASES TO BONE
     Dosage: 120 MILLIGRAM, Q4WK
     Route: 065

REACTIONS (1)
  - Infarction [Unknown]
